FAERS Safety Report 11520111 (Version 1)
Quarter: 2015Q3

REPORT INFORMATION
  Report Type: Spontaneous
  Country: US (occurrence: None)
  Receive Date: 20150917
  Receipt Date: 20150917
  Transmission Date: 20151125
  Serious: Yes (Hospitalization)
  Sender: FDA-Public Use
  Company Number: None

PATIENT
  Age: 59 Year
  Sex: Male
  Weight: 85.4 kg

DRUGS (11)
  1. EPOGEN [Concomitant]
     Active Substance: ERYTHROPOIETIN
  2. DIALYSIS [Concomitant]
     Active Substance: UNSPECIFIED INGREDIENT
  3. VENVELA [Concomitant]
  4. PHOSLO [Concomitant]
     Active Substance: CALCIUM ACETATE
  5. VENOFER [Concomitant]
     Active Substance: IRON SUCROSE
  6. FLAGEL [Concomitant]
  7. MIDODRINE 10 MG 5 MG IN HOSPITTAL [Suspect]
     Active Substance: MIDODRINE
     Indication: HYPOTENSION
     Dosage: 10 MG AND  5MG
     Route: 048
     Dates: start: 20150909, end: 20150911
  8. RENEGEL [Concomitant]
  9. COUMADIN [Concomitant]
     Active Substance: WARFARIN SODIUM
  10. SENSIPAR [Concomitant]
     Active Substance: CINACALCET HYDROCHLORIDE
  11. ASPIRIN. [Concomitant]
     Active Substance: ASPIRIN

REACTIONS (4)
  - Memory impairment [None]
  - Speech disorder [None]
  - Sleep attacks [None]
  - Communication disorder [None]

NARRATIVE: CASE EVENT DATE: 20150911
